FAERS Safety Report 15877096 (Version 1)
Quarter: 2019Q1

REPORT INFORMATION
  Report Type: Report from Study
  Country: ZA (occurrence: ZA)
  Receive Date: 20190128
  Receipt Date: 20190128
  Transmission Date: 20190417
  Serious: Yes (Hospitalization)
  Sender: FDA-Public Use
  Company Number: ZA-SAKK-2019SA011708AA

PATIENT
  Age: 66 Year
  Sex: Female

DRUGS (6)
  1. ADCO-SIMVASTATIN [Concomitant]
     Active Substance: SIMVASTATIN
     Dosage: 10 MG, QD ( AFTER BREAKFAST)
     Dates: start: 20121219
  2. DIAGLUCIDE [Concomitant]
     Active Substance: GLICLAZIDE
     Dosage: 60 MG, QD (AFTER BREAKFAST)
     Dates: start: 20111219
  3. PEARINDA [Concomitant]
     Active Substance: PERINDOPRIL ERBUMINE
     Dosage: 4 MG, QD (AFTER BREAKFAST)
     Dates: start: 20121219
  4. NO STUDY DRUG GIVEN [Suspect]
     Active Substance: UNSPECIFIED INGREDIENT
  5. OPTISULIN ^AVENTIS^ [Suspect]
     Active Substance: INSULIN GLARGINE
     Dosage: 8 U, HS
     Dates: start: 20181218
  6. MENGEN [Concomitant]
     Active Substance: METFORMIN HYDROCHLORIDE
     Dosage: 500 MG, BID (AFTER BREAKFAST AND AFTER SUPPER)
     Dates: start: 20111219

REACTIONS (4)
  - Eye operation [Unknown]
  - Syncope [Not Recovered/Not Resolved]
  - Malaise [Not Recovered/Not Resolved]
  - Blood glucose decreased [Not Recovered/Not Resolved]
